FAERS Safety Report 15029732 (Version 2)
Quarter: 2018Q3

REPORT INFORMATION
  Report Type: Spontaneous
  Country: DE (occurrence: DE)
  Receive Date: 20180619
  Receipt Date: 20180816
  Transmission Date: 20181010
  Serious: Yes (Congenital Anomaly, Other)
  Sender: FDA-Public Use
  Company Number: DE-JNJFOC-20180617567

PATIENT
  Sex: Male
  Weight: 1.95 kg

DRUGS (5)
  1. RISPERIDONE. [Suspect]
     Active Substance: RISPERIDONE
     Indication: POST-TRAUMATIC STRESS DISORDER
     Route: 064
     Dates: start: 20160922, end: 20170606
  2. RISPERIDONE. [Suspect]
     Active Substance: RISPERIDONE
     Indication: POST-TRAUMATIC STRESS DISORDER
     Route: 064
     Dates: start: 20170606
  3. DOXEPIN [Concomitant]
     Active Substance: DOXEPIN
     Indication: SLEEP DISORDER
     Route: 064
     Dates: start: 20161107
  4. FOLIC ACID. [Concomitant]
     Active Substance: FOLIC ACID
     Indication: PROPHYLAXIS OF NEURAL TUBE DEFECT
     Route: 064
     Dates: start: 20161107, end: 20170606
  5. DOXEPIN [Concomitant]
     Active Substance: DOXEPIN
     Indication: SLEEP DISORDER
     Route: 064
     Dates: start: 20160922, end: 20161107

REACTIONS (3)
  - Foetal exposure during pregnancy [Unknown]
  - Talipes [Recovering/Resolving]
  - Small for dates baby [Recovering/Resolving]
